FAERS Safety Report 15663931 (Version 1)
Quarter: 2018Q4

REPORT INFORMATION
  Report Type: Spontaneous
  Country: US (occurrence: US)
  Receive Date: 20181128
  Receipt Date: 20181128
  Transmission Date: 20190205
  Serious: No
  Sender: FDA-Public Use
  Company Number: US-009507513-1810USA013566

PATIENT
  Age: 32 Year
  Sex: Female

DRUGS (1)
  1. NUVARING [Suspect]
     Active Substance: ETHINYL ESTRADIOL\ETONOGESTREL
     Indication: CONTRACEPTION
     Dosage: A RING
     Route: 067

REACTIONS (4)
  - Poor quality device used [Unknown]
  - Abnormal withdrawal bleeding [Unknown]
  - Device expulsion [Unknown]
  - Product quality issue [Unknown]

NARRATIVE: CASE EVENT DATE: 201810
